FAERS Safety Report 25510324 (Version 2)
Quarter: 2025Q3

REPORT INFORMATION
  Report Type: Spontaneous
  Country: JP (occurrence: JP)
  Receive Date: 20250703
  Receipt Date: 20250716
  Transmission Date: 20251020
  Serious: Yes (Other)
  Sender: OTSUKA
  Company Number: JP-MMM-Otsuka-ERBZHY80

PATIENT
  Age: 8 Decade
  Sex: Male

DRUGS (3)
  1. REXULTI [Suspect]
     Active Substance: BREXPIPRAZOLE
     Indication: Dementia Alzheimer^s type
     Dosage: 0.5 MG/DAY
     Route: 048
     Dates: start: 20250523, end: 20250602
  2. REXULTI [Suspect]
     Active Substance: BREXPIPRAZOLE
     Indication: Irritability
  3. REXULTI [Suspect]
     Active Substance: BREXPIPRAZOLE
     Indication: Aggression

REACTIONS (1)
  - Pneumonia aspiration [Recovered/Resolved]

NARRATIVE: CASE EVENT DATE: 20250611
